FAERS Safety Report 10872764 (Version 1)
Quarter: 2015Q1

REPORT INFORMATION
  Report Type: Spontaneous
  Country: US (occurrence: None)
  Receive Date: 20150220
  Receipt Date: 20150220
  Transmission Date: 20150721
  Serious: No
  Sender: FDA-Public Use
  Company Number: None

PATIENT
  Age: 75 Year
  Sex: Male

DRUGS (1)
  1. FORTEO [Suspect]
     Active Substance: TERIPARATIDE
     Route: 058
     Dates: start: 20141007, end: 20150217

REACTIONS (3)
  - Bone pain [None]
  - Pain in extremity [None]
  - Abdominal pain [None]

NARRATIVE: CASE EVENT DATE: 20150201
